FAERS Safety Report 8236419 (Version 4)
Quarter: 2012Q4

REPORT INFORMATION
  Report Type: Report from Study
  Country: PL (occurrence: PL)
  Receive Date: 20111108
  Receipt Date: 20121214
  Transmission Date: 20130627
  Serious: Yes (Hospitalization)
  Sender: FDA-Public Use
  Company Number: PL-GLAXOSMITHKLINE-Z0012679A

PATIENT
  Age: 70 Year
  Sex: Female
  Weight: 77.5 kg

DRUGS (3)
  1. OFATUMUMAB [Suspect]
     Indication: CHRONIC LYMPHOCYTIC LEUKAEMIA
     Route: 042
     Dates: start: 20110324
  2. CHLORAMBUCIL [Suspect]
     Indication: CHRONIC LYMPHOCYTIC LEUKAEMIA
     Route: 048
     Dates: start: 20110324
  3. ESSENTIALE FORTE [Concomitant]
     Indication: HEPATIC FUNCTION ABNORMAL
     Dosage: 600MG Three times per day
     Route: 048
     Dates: start: 20111103

REACTIONS (1)
  - Hepatic enzyme increased [Recovered/Resolved]
